FAERS Safety Report 4835983-9 (Version None)
Quarter: 2005Q4

REPORT INFORMATION
  Report Type: 
  Country: None (occurrence: None)
  Receive Date: 20051118
  Receipt Date: 20051104
  Transmission Date: 20060501
  Serious: Yes (Other)
  Sender: FDA-Public Use
  Company Number: 12852

PATIENT

DRUGS (1)
  1. VINBLASTINE [Suspect]

REACTIONS (1)
  - AUTONOMIC NEUROPATHY [None]
